FAERS Safety Report 19855277 (Version 1)
Quarter: 2021Q3

REPORT INFORMATION
  Report Type: Spontaneous
  Country: US (occurrence: US)
  Receive Date: 20210919
  Receipt Date: 20210919
  Transmission Date: 20211014
  Serious: Yes (Disabling)
  Sender: FDA-Public Use
  Company Number: None

PATIENT
  Age: 58 Year
  Sex: Female
  Weight: 62.1 kg

DRUGS (1)
  1. DULOXETINE 30 MG CAP [Suspect]
     Active Substance: DULOXETINE HYDROCHLORIDE
     Indication: FIBROMYALGIA
     Dosage: ?          QUANTITY:1 CAPSULE(S);?
     Route: 048
     Dates: start: 20210615, end: 20210622

REACTIONS (4)
  - Diarrhoea [None]
  - Product substitution issue [None]
  - Muscle spasms [None]
  - Constipation [None]

NARRATIVE: CASE EVENT DATE: 20210615
